FAERS Safety Report 9820219 (Version 1)
Quarter: 2014Q1

REPORT INFORMATION
  Report Type: Spontaneous
  Country: US (occurrence: US)
  Receive Date: 20140116
  Receipt Date: 20140116
  Transmission Date: 20141002
  Serious: No
  Sender: FDA-Public Use
  Company Number: US-BAYER-2014-007532

PATIENT
  Age: 72 Year
  Sex: Female
  Weight: 77.1 kg

DRUGS (2)
  1. ALEVE CAPLET [Suspect]
     Indication: BACK PAIN
     Dosage: 1 DF, PRN
     Route: 048
     Dates: start: 20140109, end: 20140114
  2. VITAMIN C [Concomitant]

REACTIONS (1)
  - Drug ineffective [None]
